FAERS Safety Report 14950261 (Version 1)
Quarter: 2018Q2

REPORT INFORMATION
  Report Type: Spontaneous
  Country: US (occurrence: US)
  Receive Date: 20180530
  Receipt Date: 20180530
  Transmission Date: 20180711
  Serious: Yes (Other)
  Sender: FDA-Public Use
  Company Number: US-AUROBINDO-AUR-APL-2017-38360

PATIENT
  Age: 6 Year
  Sex: Female

DRUGS (3)
  1. ACETAMINOPHEN. [Suspect]
     Active Substance: ACETAMINOPHEN
     Indication: ARTHRALGIA
     Route: 065
  2. IBUPROFEN. [Suspect]
     Active Substance: IBUPROFEN
     Indication: ARTHRALGIA
     Route: 065
  3. CEFTRIAXONE. [Suspect]
     Active Substance: CEFTRIAXONE
     Indication: PRODUCT USED FOR UNKNOWN INDICATION
     Route: 065

REACTIONS (11)
  - Swelling [Unknown]
  - Peripheral swelling [Unknown]
  - Pyrexia [Unknown]
  - Heart sounds abnormal [Unknown]
  - Pain [Unknown]
  - Infection masked [Unknown]
  - Pyuria [Unknown]
  - Erythema [Unknown]
  - Hepatomegaly [Unknown]
  - Urosepsis [Unknown]
  - Hypotension [Unknown]
